FAERS Safety Report 16395475 (Version 3)
Quarter: 2020Q2

REPORT INFORMATION
  Report Type: Report from Study
  Country: BR (occurrence: BR)
  Receive Date: 20190605
  Receipt Date: 20200619
  Transmission Date: 20200713
  Serious: Yes (Death, Hospitalization, Other)
  Sender: FDA-Public Use
  Company Number: BR-B.I. PHARMACEUTICALS,INC./RIDGEFIELD-2018-BI-047227

PATIENT
  Age: 74 Year
  Sex: Male
  Weight: 55 kg

DRUGS (8)
  1. OFEV [Suspect]
     Active Substance: NINTEDANIB
     Route: 048
     Dates: start: 201806
  2. CENTRUM [Concomitant]
     Active Substance: VITAMINS
     Indication: VITAMIN SUPPLEMENTATION
     Route: 048
  3. SINVASTATINA [Concomitant]
     Active Substance: SIMVASTATIN
     Indication: BLOOD CHOLESTEROL ABNORMAL
     Route: 048
  4. OFEV [Suspect]
     Active Substance: NINTEDANIB
     Route: 048
  5. OFEV [Suspect]
     Active Substance: NINTEDANIB
     Route: 048
  6. OFEV [Suspect]
     Active Substance: NINTEDANIB
     Route: 048
  7. OFEV [Suspect]
     Active Substance: NINTEDANIB
     Indication: IDIOPATHIC PULMONARY FIBROSIS
     Route: 048
     Dates: start: 201711, end: 201806
  8. OFEV [Suspect]
     Active Substance: NINTEDANIB
     Dosage: ONE AT LUNCH AND ANOTHER AT DINNER.
     Route: 048
     Dates: start: 2018

REACTIONS (16)
  - Infarction [Unknown]
  - Dizziness [Not Recovered/Not Resolved]
  - Cerebrovascular accident [Fatal]
  - Abdominal pain [Recovered/Resolved]
  - Gastrointestinal disorder [Recovered/Resolved]
  - Weight decreased [Not Recovered/Not Resolved]
  - Respiratory failure [Unknown]
  - Cough [Not Recovered/Not Resolved]
  - Hepatic enzyme increased [Recovered/Resolved]
  - Cardiac arrest [Fatal]
  - Diarrhoea [Recovered/Resolved]
  - Asthenia [Unknown]
  - Liver disorder [Recovered/Resolved]
  - Cough [Unknown]
  - Cataract [Unknown]
  - Movement disorder [Unknown]

NARRATIVE: CASE EVENT DATE: 201803
